FAERS Safety Report 6937008-8 (Version None)
Quarter: 2010Q3

REPORT INFORMATION
  Report Type: 
  Country: None (occurrence: None)
  Receive Date: 20100823
  Receipt Date: 20100809
  Transmission Date: 20110219
  Serious: Yes (Other)
  Sender: FDA-Public Use
  Company Number: PHEH2009US09033

PATIENT
  Sex: Female

DRUGS (5)
  1. RECLAST [Suspect]
     Dosage: UNK
     Dates: start: 20090728
  2. FOSAMAX [Suspect]
  3. IBUPROFEN [Concomitant]
  4. ASPIRIN [Concomitant]
  5. MUSCLE RELAXANTS [Concomitant]
     Indication: BLOOD VISCOSITY INCREASED

REACTIONS (23)
  - ACTIVITIES OF DAILY LIVING IMPAIRED [None]
  - BONE FORMATION INCREASED [None]
  - CONTUSION [None]
  - DYSSTASIA [None]
  - EMOTIONAL DISORDER [None]
  - FALL [None]
  - GAIT DISTURBANCE [None]
  - GENERAL PHYSICAL CONDITION ABNORMAL [None]
  - GINGIVAL SWELLING [None]
  - HAEMORRHAGE [None]
  - KYPHOSCOLIOSIS [None]
  - MALAISE [None]
  - MUSCLE FATIGUE [None]
  - MUSCLE SPASMS [None]
  - MUSCLE STRAIN [None]
  - NAUSEA [None]
  - OSTEOPOROSIS [None]
  - PAIN [None]
  - PHYSICAL DISABILITY [None]
  - TOOTH LOSS [None]
  - WALKING AID USER [None]
  - WEIGHT DECREASED [None]
  - WHEELCHAIR USER [None]
